FAERS Safety Report 4681546-8 (Version None)
Quarter: 2005Q2

REPORT INFORMATION
  Report Type: 
  Country: None (occurrence: None)
  Receive Date: 20050602
  Receipt Date: 20050520
  Transmission Date: 20051028
  Serious: Yes (Hospitalization)
  Sender: FDA-Public Use
  Company Number: 2005078279

PATIENT
  Age: 53 Year
  Sex: Male
  Weight: 79.8331 kg

DRUGS (4)
  1. BEXTRA [Suspect]
     Indication: ARTHRITIS
     Dosage: 30 MG (10 MG 3 IN 1 D)
     Dates: start: 20040101, end: 20050101
  2. REGLAN [Suspect]
     Indication: GASTROOESOPHAGEAL REFLUX DISEASE
     Dates: start: 20050501, end: 20050501
  3. TAGAMET [Concomitant]
  4. DARICET (DEXTROPROPOXYPHENE NAPSILATE,PARACETAMOL) [Concomitant]

REACTIONS (7)
  - ABNORMAL DREAMS [None]
  - CHOKING [None]
  - DRUG DOSE OMISSION [None]
  - DYSPNOEA [None]
  - GASTROOESOPHAGEAL REFLUX DISEASE [None]
  - HEADACHE [None]
  - HYPERHIDROSIS [None]
